FAERS Safety Report 7298216-2 (Version None)
Quarter: 2011Q1

REPORT INFORMATION
  Report Type: 
  Country: None (occurrence: None)
  Receive Date: 20110201
  Receipt Date: 20101222
  Transmission Date: 20110831
  Serious: Yes (Hospitalization, Disabling)
  Sender: FDA-Public Use
  Company Number: 003-043

PATIENT
  Age: 59 Year
  Sex: Male
  Weight: 102.0593 kg

DRUGS (2)
  1. CROFAB [Suspect]
  2. CROFAB [Suspect]
     Indication: SNAKE BITE
     Dosage: 33 VIALS IV
     Route: 042

REACTIONS (7)
  - MOTOR DYSFUNCTION [None]
  - SOFT TISSUE DISORDER [None]
  - NEUROPATHY PERIPHERAL [None]
  - RENAL FAILURE [None]
  - INFECTION [None]
  - WOUND [None]
  - IMPAIRED WORK ABILITY [None]
